FAERS Safety Report 24386222 (Version 3)
Quarter: 2024Q4

REPORT INFORMATION
  Report Type: Spontaneous
  Country: ES (occurrence: ES)
  Receive Date: 20241001
  Receipt Date: 20241016
  Transmission Date: 20250115
  Serious: Yes (Death, Hospitalization, Other)
  Sender: DAIICHI
  Company Number: ES-DSJP-DS-2024-101377-ES

PATIENT
  Sex: Female

DRUGS (2)
  1. ENHERTU [Suspect]
     Active Substance: FAM-TRASTUZUMAB DERUXTECAN-NXKI
     Indication: HER2 positive breast cancer
     Dosage: UNK (TWO CYCLES)
     Route: 065
     Dates: start: 202407
  2. ENHERTU [Suspect]
     Active Substance: FAM-TRASTUZUMAB DERUXTECAN-NXKI
     Indication: Breast cancer metastatic

REACTIONS (4)
  - Death [Fatal]
  - Arrhythmia [Fatal]
  - Ventricular fibrillation [Recovered/Resolved]
  - Pneumonia cytomegaloviral [Recovering/Resolving]
